FAERS Safety Report 4274473-1 (Version None)
Quarter: 2004Q1

REPORT INFORMATION
  Report Type: 
  Country: None (occurrence: None)
  Receive Date: 20040115
  Receipt Date: 20040106
  Transmission Date: 20041129
  Serious: Yes (Hospitalization, Other)
  Sender: FDA-Public Use
  Company Number: 2004-01-0114

PATIENT
  Age: 55 Year
  Sex: Male

DRUGS (3)
  1. BETAMETHASONE ORAL, NOT OTHERWISE SPECIFIED [Suspect]
     Indication: ARTHRALGIA
  2. PIROXICAM [Suspect]
     Indication: ARTHRALGIA
  3. IBUPROFEN [Suspect]
     Indication: ARTHRALGIA

REACTIONS (5)
  - ACQUIRED PYLORIC STENOSIS [None]
  - ASEPTIC NECROSIS BONE [None]
  - DUODENAL OBSTRUCTION [None]
  - GASTRIC ULCER [None]
  - VOMITING [None]
